FAERS Safety Report 9468899 (Version 4)
Quarter: 2013Q4

REPORT INFORMATION
  Report Type: Spontaneous
  Country: US (occurrence: US)
  Receive Date: 20130821
  Receipt Date: 20131101
  Transmission Date: 20140711
  Serious: Yes (Hospitalization, Other)
  Sender: FDA-Public Use
  Company Number: US-009507513-1308USA009406

PATIENT
  Age: 76 Year
  Sex: Male
  Weight: 98 kg

DRUGS (10)
  1. JANUVIA [Suspect]
     Indication: DIABETES MELLITUS
     Dosage: UNK
     Route: 048
     Dates: start: 201209, end: 20130320
  2. LOSARTAN POTASSIUM [Concomitant]
  3. LISINOPRIL [Concomitant]
  4. LANTUS [Concomitant]
     Dosage: 14 MG, HS
     Route: 058
  5. AMARYL [Concomitant]
  6. CLARITIN [Concomitant]
  7. LOVASTATIN [Concomitant]
  8. GLUCOPHAGE [Concomitant]
  9. ACTOS [Concomitant]
  10. FLOMAX (MORNIFLUMATE) [Concomitant]

REACTIONS (6)
  - Microcytic anaemia [Recovered/Resolved]
  - Pancreatitis [Recovered/Resolved]
  - Constipation [Recovered/Resolved]
  - Hepatic enzyme increased [Recovered/Resolved]
  - Diabetes mellitus inadequate control [Recovered/Resolved]
  - Bundle branch block left [Recovered/Resolved]
